FAERS Safety Report 4825448-2 (Version None)
Quarter: 2005Q4

REPORT INFORMATION
  Report Type: 
  Country: None (occurrence: None)
  Receive Date: 20051111
  Receipt Date: 20050930
  Transmission Date: 20060501
  Serious: Yes (Hospitalization, Disabling)
  Sender: FDA-Public Use
  Company Number: US-MERCK-0510USA01906

PATIENT
  Age: 49 Year
  Sex: Female
  Weight: 63 kg

DRUGS (3)
  1. VIOXX [Suspect]
     Indication: ARTHRITIS
     Route: 048
     Dates: start: 20030101, end: 20031001
  2. TYLENOL (CAPLET) [Concomitant]
     Route: 065
  3. BENADRYL [Concomitant]
     Route: 065

REACTIONS (4)
  - CARDIAC FAILURE CONGESTIVE [None]
  - DEPRESSION [None]
  - MYOCARDIAL INFARCTION [None]
  - OVERDOSE [None]
